FAERS Safety Report 20562538 (Version 1)
Quarter: 2022Q1

REPORT INFORMATION
  Report Type: Other
  Country: KR (occurrence: None)
  Receive Date: 20220307
  Receipt Date: 20220307
  Transmission Date: 20220424
  Serious: Yes (Other)
  Sender: FDA-Public Use
  Company Number: KR-Invatech-000229

PATIENT
  Age: 46 Year
  Sex: Male

DRUGS (1)
  1. PYRIDOSTIGMINE [Suspect]
     Active Substance: PYRIDOSTIGMINE
     Indication: Ocular myasthenia
     Dosage: 180 MG/D
     Route: 048

REACTIONS (3)
  - Optic neuritis [Recovering/Resolving]
  - Multiple sclerosis [Unknown]
  - Disease progression [Unknown]
